FAERS Safety Report 17178167 (Version 1)
Quarter: 2019Q4

REPORT INFORMATION
  Report Type: Spontaneous
  Country: US (occurrence: US)
  Receive Date: 20191219
  Receipt Date: 20191219
  Transmission Date: 20200122
  Serious: Yes (Other)
  Sender: FDA-Public Use
  Company Number: US-COOPERSURGICAL, INC.-US-2019CPS003490

PATIENT
  Age: 39 Year
  Sex: Female
  Weight: 67.12 kg

DRUGS (2)
  1. PARAGARD T 380A [Suspect]
     Active Substance: COPPER
     Indication: CONTRACEPTION
     Dosage: UNK
     Route: 015
     Dates: start: 20161202
  2. MULTIVITAMIN                       /00097801/ [Concomitant]
     Active Substance: VITAMINS
     Indication: SUPPLEMENTATION THERAPY
     Dosage: UNK
     Route: 065

REACTIONS (8)
  - Device breakage [Not Recovered/Not Resolved]
  - Device expulsion [Recovered/Resolved]
  - Menstruation irregular [Unknown]
  - Complication of device removal [Not Recovered/Not Resolved]
  - Dysmenorrhoea [Unknown]
  - Abdominal distension [Unknown]
  - Foreign body in reproductive tract [Not Recovered/Not Resolved]
  - Coital bleeding [Unknown]

NARRATIVE: CASE EVENT DATE: 2019
